FAERS Safety Report 12492174 (Version 1)
Quarter: 2016Q2

REPORT INFORMATION
  Report Type: Other
  Country: None (occurrence: JP)
  Receive Date: 20160623
  Receipt Date: 20160623
  Transmission Date: 20160815
  Serious: Yes (Other)
  Sender: FDA-Public Use
  Company Number: JP-CONCORDIA LABORATORIES INC.-PIN-2016-00027

PATIENT
  Sex: 0

DRUGS (1)
  1. PHOTOFRIN [Suspect]
     Active Substance: PORFIMER SODIUM
     Indication: OESOPHAGEAL SQUAMOUS CELL CARCINOMA
     Route: 042

REACTIONS (1)
  - Oesophageal fistula [Unknown]
